FAERS Safety Report 16050750 (Version 6)
Quarter: 2019Q2

REPORT INFORMATION
  Report Type: Report from Study
  Country: None (occurrence: DE)
  Receive Date: 20190308
  Receipt Date: 20190418
  Transmission Date: 20190711
  Serious: Yes (Death, Hospitalization, Other)
  Sender: FDA-Public Use
  Company Number: DE-ABBVIE-19S-062-2681525-00

PATIENT
  Age: 84 Year
  Sex: Male

DRUGS (19)
  1. DUODOPA [Suspect]
     Active Substance: CARBIDOPA\LEVODOPA
     Dosage: MD: 9 ML CRD: 4.0 ML/H ED: 2 ML
     Route: 050
     Dates: start: 201903, end: 201903
  2. NOVAMINSULFON [Concomitant]
     Active Substance: METAMIZOLE
     Indication: PRODUCT USED FOR UNKNOWN INDICATION
     Dosage: WHEN REQUIRED
  3. DUODOPA [Suspect]
     Active Substance: CARBIDOPA\LEVODOPA
     Dosage: MD: 4 ML, CRD: 6 ML/H, CRN: 3.5 ML/H, ED: 2 ML
     Route: 050
     Dates: start: 20190328, end: 2019
  4. QUETIAPIN [Concomitant]
     Active Substance: QUETIAPINE
     Indication: PRODUCT USED FOR UNKNOWN INDICATION
  5. DUODOPA [Suspect]
     Active Substance: CARBIDOPA\LEVODOPA
     Indication: PARKINSON^S DISEASE
     Dosage: MD: 9 ML CRD: 3.7 ML/H ED: 1.5 ML
     Route: 050
     Dates: start: 20190220, end: 2019
  6. OTEZLA [Concomitant]
     Active Substance: APREMILAST
     Indication: PRODUCT USED FOR UNKNOWN INDICATION
  7. DUODOPA [Suspect]
     Active Substance: CARBIDOPA\LEVODOPA
     Dosage: MD: 9 ML CRD: 3.9 ML/H ED: 1.5 ML
     Route: 050
     Dates: start: 2019, end: 20190306
  8. DUODOPA [Suspect]
     Active Substance: CARBIDOPA\LEVODOPA
     Dosage: MD: 9 ML CRD: 4.5 ML/H ED: 1.5 ML
     Route: 050
     Dates: start: 20190307, end: 201903
  9. MADOPAR DEPOT [Concomitant]
     Active Substance: BENSERAZIDE HYDROCHLORIDE\LEVODOPA
     Indication: PRODUCT USED FOR UNKNOWN INDICATION
  10. MIRTAZAPIN [Concomitant]
     Active Substance: MIRTAZAPINE
     Indication: PRODUCT USED FOR UNKNOWN INDICATION
  11. DUODOPA [Suspect]
     Active Substance: CARBIDOPA\LEVODOPA
     Dosage: MD: 9 ML CRD: 3.9 ML/H ED: 1.5 ML
     Route: 050
     Dates: start: 201903, end: 201903
  12. DULCOLAX NOS [Concomitant]
     Active Substance: BISACODYL OR DOCUSATE SODIUM
     Indication: PRODUCT USED FOR UNKNOWN INDICATION
     Dosage: AS REQUIRED
  13. DUODOPA [Suspect]
     Active Substance: CARBIDOPA\LEVODOPA
     Dosage: MD: 3 ML, CRD: 3.3 ML/H, CRN: 2.1 ML/H, ED: 2 ML
     Route: 050
     Dates: start: 2019
  14. MOVICOL [Concomitant]
     Active Substance: POLYETHYLENE GLYCOL 3350\POTASSIUM CHLORIDE\SODIUM BICARBONATE\SODIUM CHLORIDE
     Indication: PRODUCT USED FOR UNKNOWN INDICATION
     Dosage: SACHET
  15. DUODOPA [Suspect]
     Active Substance: CARBIDOPA\LEVODOPA
     Dosage: MD: 9 ML CRD: 5.5 ML/H ED: 2 ML
     Route: 050
     Dates: start: 201903, end: 20190328
  16. DUODOPA [Suspect]
     Active Substance: CARBIDOPA\LEVODOPA
     Dosage: MD: 3 ML, CRD: 3.5 ML/H, CRN: 2.3 ML/H, ED: 2 ML
     Route: 050
     Dates: start: 2019, end: 2019
  17. MIRTAZAPIN [Concomitant]
     Active Substance: MIRTAZAPINE
  18. EXELON [Concomitant]
     Active Substance: RIVASTIGMINE TARTRATE
     Indication: PRODUCT USED FOR UNKNOWN INDICATION
  19. MONO-EMBOLEX [Concomitant]
     Active Substance: CERTOPARIN SODIUM
     Indication: PRODUCT USED FOR UNKNOWN INDICATION
     Route: 058

REACTIONS (13)
  - Pneumonia aspiration [Fatal]
  - Nightmare [Not Recovered/Not Resolved]
  - Hallucination [Not Recovered/Not Resolved]
  - Dysphagia [Not Recovered/Not Resolved]
  - Infection susceptibility increased [Recovering/Resolving]
  - Arrhythmia [Not Recovered/Not Resolved]
  - Mobility decreased [Not Recovered/Not Resolved]
  - Therapeutic product effect incomplete [Not Recovered/Not Resolved]
  - Atrial fibrillation [Not Recovered/Not Resolved]
  - Circulatory collapse [Not Recovered/Not Resolved]
  - Pneumonia aspiration [Recovered/Resolved]
  - Secretion discharge [Recovered/Resolved with Sequelae]
  - Device dislocation [Recovered/Resolved with Sequelae]

NARRATIVE: CASE EVENT DATE: 201902
